FAERS Safety Report 8379731-7 (Version None)
Quarter: 2012Q2

REPORT INFORMATION
  Report Type: 
  Country: None (occurrence: None)
  Receive Date: 20120523
  Receipt Date: 20120517
  Transmission Date: 20120825
  Serious: No
  Sender: FDA-Public Use
  Company Number: US-PFIZER INC-2012121285

PATIENT
  Sex: Female

DRUGS (1)
  1. PROTONIX [Suspect]
     Dosage: UNK

REACTIONS (2)
  - GASTRIC DISORDER [None]
  - BACK DISORDER [None]
